FAERS Safety Report 10257795 (Version 1)
Quarter: 2014Q2

REPORT INFORMATION
  Report Type: Spontaneous
  Country: US (occurrence: None)
  Receive Date: 20140623
  Receipt Date: 20140623
  Transmission Date: 20141212
  Serious: Yes (Other)
  Sender: FDA-Public Use
  Company Number: None

PATIENT
  Age: 60 Year
  Sex: Female

DRUGS (2)
  1. SOMATULINE [Suspect]
     Indication: ACROMEGALY
     Dosage: SOMATULINE 90MG/0.3ML  EVERY 28 DAYS  DEEP SUBQ INJECTION
     Route: 058
     Dates: start: 20140604, end: 20140620
  2. SOMATULINE [Suspect]
     Indication: GIGANTISM
     Dosage: SOMATULINE 90MG/0.3ML  EVERY 28 DAYS  DEEP SUBQ INJECTION
     Route: 058
     Dates: start: 20140604, end: 20140620

REACTIONS (3)
  - Muscle spasms [None]
  - Abdominal pain [None]
  - Diarrhoea [None]
